FAERS Safety Report 9213830 (Version 1)
Quarter: 2013Q2

REPORT INFORMATION
  Report Type: Spontaneous
  Country: US (occurrence: US)
  Receive Date: 20130405
  Receipt Date: 20130405
  Transmission Date: 20140414
  Serious: No
  Sender: FDA-Public Use
  Company Number: US-009507513-1304USA002435

PATIENT
  Age: 40 Year
  Sex: Female

DRUGS (9)
  1. JANUMET [Suspect]
     Indication: TYPE 2 DIABETES MELLITUS
     Dosage: 50/500, 1 TABLET TWICE DAILY
     Route: 048
     Dates: start: 20130314, end: 20130331
  2. STRATTERA [Concomitant]
     Dosage: UNK
  3. [THERAPY UNSPECIFIED] [Concomitant]
     Indication: BLOOD PRESSURE
     Dosage: UNK
  4. LOSARTAN POTASSIUM AND HYDROCHLOROTHIAZIDE TABLETS [Concomitant]
     Dosage: UNK
  5. SPIRONOLACTONE [Concomitant]
     Dosage: UNK
  6. ZOLOFT [Concomitant]
     Dosage: UNK
  7. SINGULAIR [Concomitant]
     Dosage: UNK
  8. FLONASE [Concomitant]
     Dosage: UNK
  9. IMITREX (SUMATRIPTAN) [Concomitant]
     Dosage: UNK

REACTIONS (2)
  - Fatigue [Recovering/Resolving]
  - Headache [Recovering/Resolving]
